FAERS Safety Report 7995447-0 (Version None)
Quarter: 2011Q4

REPORT INFORMATION
  Report Type: 
  Country: None (occurrence: None)
  Receive Date: 20111220
  Receipt Date: 20111213
  Transmission Date: 20120403
  Serious: Yes (Other)
  Sender: FDA-Public Use
  Company Number: US-BAYER-2011-006305

PATIENT
  Age: 69 Year
  Sex: Female
  Weight: 70.295 kg

DRUGS (18)
  1. CATAPRES [Concomitant]
     Dosage: 0.2 MG, UNK
  2. ETOMIDATE [Concomitant]
     Dosage: UNK
     Route: 042
     Dates: start: 20050420
  3. ZESTRIL [Concomitant]
     Dosage: 30 MG, QD
     Route: 048
  4. ZOCOR [Concomitant]
     Dosage: 40 MG, QD
     Route: 048
  5. TRASYLOL [Suspect]
     Indication: AORTIC VALVE REPLACEMENT
     Dosage: UNK
     Route: 042
     Dates: start: 20050420
  6. PLAVIX [Concomitant]
     Dosage: 75 MG, UNK
     Route: 048
  7. TRASYLOL [Suspect]
     Indication: CORONARY ARTERY BYPASS
  8. LANTUS [Concomitant]
     Dosage: 45 U, UNK
     Route: 058
  9. FENTANYL [Concomitant]
     Dosage: UNK
     Route: 042
     Dates: start: 20050420
  10. ATENOLOL [Concomitant]
     Dosage: 100 MG, QD
     Route: 048
  11. NITROGLYCERIN [Concomitant]
     Dosage: UNK
     Route: 042
     Dates: start: 20050420
  12. FENTANYL [Concomitant]
     Dosage: 5, CPB
     Dates: start: 20050420
  13. PROTAMINE SULFATE [Concomitant]
     Dosage: 450 MG, UNK
     Route: 042
     Dates: start: 20050420
  14. ACETYLSALICYLIC ACID SRT [Concomitant]
     Dosage: 325 MG, QD
     Route: 048
  15. LORTAB [Concomitant]
     Route: 048
  16. VERSED [Concomitant]
     Dosage: UNK
     Route: 042
     Dates: start: 20050420
  17. PAVULON [Concomitant]
     Dosage: UNK
     Route: 042
     Dates: start: 20050420
  18. LIDOCAINE [Concomitant]
     Dosage: 100 MG, CPB
     Dates: start: 20050420

REACTIONS (11)
  - STRESS [None]
  - EMOTIONAL DISTRESS [None]
  - FEAR [None]
  - MULTI-ORGAN FAILURE [None]
  - RENAL INJURY [None]
  - RENAL FAILURE [None]
  - RENAL IMPAIRMENT [None]
  - UNEVALUABLE EVENT [None]
  - ANXIETY [None]
  - PAIN [None]
  - INJURY [None]
